FAERS Safety Report 13742958 (Version 1)
Quarter: 2017Q3

REPORT INFORMATION
  Report Type: Spontaneous
  Country: CN (occurrence: CN)
  Receive Date: 20170711
  Receipt Date: 20170711
  Transmission Date: 20171127
  Serious: Yes (Other)
  Sender: FDA-Public Use
  Company Number: CN-BAYER-2017-130761

PATIENT
  Age: 86 Year
  Sex: Female
  Weight: 40 kg

DRUGS (1)
  1. AVELOX [Suspect]
     Active Substance: MOXIFLOXACIN HYDROCHLORIDE
     Indication: INFECTION
     Dosage: 0.4 G, QD
     Route: 041
     Dates: start: 20170411, end: 20170413

REACTIONS (1)
  - Speech disorder [Recovered/Resolved]

NARRATIVE: CASE EVENT DATE: 20170414
